FAERS Safety Report 8616766-0 (Version None)
Quarter: 2012Q3

REPORT INFORMATION
  Report Type: 
  Country: None (occurrence: None)
  Receive Date: 20120823
  Receipt Date: 20120803
  Transmission Date: 20120928
  Serious: No
  Sender: FDA-Public Use
  Company Number: US-009507513-1208USA002262

PATIENT

DRUGS (4)
  1. TEMODAR [Suspect]
     Indication: BRAIN NEOPLASM
     Dosage: 150 MG, QD
     Route: 048
     Dates: start: 20120719
  2. TEMODAR [Suspect]
     Dosage: 150 MG, QD
     Route: 048
     Dates: start: 20120719
  3. TEMODAR [Suspect]
     Dosage: 150 MG, QD
     Route: 048
     Dates: start: 20120719
  4. TEMODAR [Suspect]
     Dosage: 150 MG, QD
     Route: 048
     Dates: start: 20120719

REACTIONS (1)
  - POST PROCEDURAL INFECTION [None]
